FAERS Safety Report 8805911 (Version 1)
Quarter: 2012Q4

REPORT INFORMATION
  Report Type: Spontaneous
  Country: US (occurrence: None)
  Receive Date: 20120917
  Receipt Date: 20120917
  Transmission Date: 20130627
  Serious: Yes (Other)
  Sender: FDA-Public Use
  Company Number: IDR-00639

PATIENT
  Age: 87 Year
  Sex: Female

DRUGS (3)
  1. PROPRANOLOL [Suspect]
     Dosage: 120 mg capsule daily, oral
     Route: 048
  2. PROPRANOLOL HYDROCHLORIDE ER [Suspect]
     Dosage: one 120 mg capsule daily, oral
     Route: 048
  3. PROPRANOLOL HYDROCHLORIDE ER [Suspect]
     Dosage: one 120 mg capsule daily, oral
     Route: 048

REACTIONS (4)
  - Hypertension [None]
  - Fall [None]
  - Head injury [None]
  - Erythema [None]
